FAERS Safety Report 21854621 (Version 1)
Quarter: 2023Q1

REPORT INFORMATION
  Report Type: Spontaneous
  Country: US (occurrence: US)
  Receive Date: 20230112
  Receipt Date: 20230112
  Transmission Date: 20230418
  Serious: No
  Sender: FDA-Public Use
  Company Number: US-BRISTOL-MYERS SQUIBB COMPANY-2023-005193

PATIENT
  Age: 67 Year

DRUGS (10)
  1. REVLIMID [Suspect]
     Active Substance: LENALIDOMIDE
     Indication: Plasma cell myeloma
     Route: 048
     Dates: start: 20220113
  2. ASPIRIN 325MG EC TABLETS [Concomitant]
     Indication: Product used for unknown indication
  3. ZOMETA 4MG/5ML INJ, 5ML [Concomitant]
     Indication: Product used for unknown indication
  4. ACYCLOVIR 400MG TABLETS [Concomitant]
     Indication: Product used for unknown indication
  5. AMLODIPINE BESYLATE I0MG TABLETS [Concomitant]
     Indication: Product used for unknown indication
  6. DARZALEX [Concomitant]
     Active Substance: DARATUMUMAB
     Indication: Product used for unknown indication
  7. DEXAMETHASONE 4MG TABLETS [Concomitant]
     Indication: Product used for unknown indication
  8. DOXYCYCLINE HYCLATE [Concomitant]
     Active Substance: DOXYCYCLINE HYCLATE
     Indication: Product used for unknown indication
  9. SYNTHROID [Concomitant]
     Active Substance: LEVOTHYROXINE SODIUM
     Indication: Product used for unknown indication
  10. TYLENOL [Concomitant]
     Active Substance: ACETAMINOPHEN
     Indication: Product used for unknown indication

REACTIONS (2)
  - Dry skin [Unknown]
  - Lip dry [Unknown]

NARRATIVE: CASE EVENT DATE: 20221201
